FAERS Safety Report 21619912 (Version 1)
Quarter: 2022Q4

REPORT INFORMATION
  Report Type: Spontaneous
  Country: KR (occurrence: KR)
  Receive Date: 20221121
  Receipt Date: 20221121
  Transmission Date: 20230112
  Serious: Yes (Life-Threatening, Other)
  Sender: FDA-Public Use
  Company Number: KR-CELLTRION INC.-2022KR019417

PATIENT

DRUGS (11)
  1. HERZUMA [Suspect]
     Active Substance: TRASTUZUMAB-PKRB
     Indication: Biliary cancer metastatic
     Dosage: 6 MG/KG, (CYCLE 1)
     Route: 042
  2. HERZUMA [Suspect]
     Active Substance: TRASTUZUMAB-PKRB
     Dosage: 4 MG/KG, EVERY 2 WEEKS (CYCLE 2)
     Route: 042
  3. GEMCITABINE [Suspect]
     Active Substance: GEMCITABINE
     Indication: Chemotherapy
  4. CISPLATIN [Suspect]
     Active Substance: CISPLATIN
     Indication: Chemotherapy
  5. OXALIPLATIN [Suspect]
     Active Substance: OXALIPLATIN
     Indication: Biliary cancer metastatic
     Dosage: 85 MG/M2 (CYCLE 1)
     Route: 042
  6. OXALIPLATIN [Suspect]
     Active Substance: OXALIPLATIN
     Dosage: EVERY 2 WEEKS (CYCLE 2)
  7. LEUCOVORIN [Suspect]
     Active Substance: LEUCOVORIN
     Indication: Biliary cancer metastatic
     Dosage: 200 MG/M2 (CYCLE 1)
     Route: 042
  8. LEUCOVORIN [Suspect]
     Active Substance: LEUCOVORIN
     Dosage: EVERY 2 WEEKS (CYCLE 2)
  9. FLUOROURACIL [Suspect]
     Active Substance: FLUOROURACIL
     Indication: Biliary cancer metastatic
     Dosage: 400 MG/M2 (CYCLE 1)
     Route: 040
  10. FLUOROURACIL [Suspect]
     Active Substance: FLUOROURACIL
     Dosage: 2400 MG/M2
     Route: 042
  11. FLUOROURACIL [Suspect]
     Active Substance: FLUOROURACIL
     Dosage: EVERY 2 WEEKS (CYCLE 2)

REACTIONS (7)
  - Neutropenia [Unknown]
  - Anaemia [Unknown]
  - Peripheral sensory neuropathy [Unknown]
  - Thrombocytopenia [Unknown]
  - Adverse event [Unknown]
  - Therapy partial responder [Unknown]
  - Off label use [Unknown]
